FAERS Safety Report 23636202 (Version 1)
Quarter: 2024Q1

REPORT INFORMATION
  Report Type: Report from Study
  Country: US (occurrence: US)
  Receive Date: 20240315
  Receipt Date: 20240315
  Transmission Date: 20240410
  Serious: Yes (Other)
  Sender: FDA-Public Use
  Company Number: US-UCBSA-2024010346

PATIENT
  Age: 4 Year
  Sex: Female
  Weight: 16 kg

DRUGS (1)
  1. FINTEPLA [Suspect]
     Active Substance: FENFLURAMINE
     Indication: Seizure
     Dosage: 2.2 MILLILITER, 2X/DAY (BID)
     Route: 048
     Dates: start: 20221208

REACTIONS (6)
  - Seizure [Recovered/Resolved]
  - Generalised tonic-clonic seizure [Recovered/Resolved]
  - Epilepsy [Unknown]
  - Illness [Unknown]
  - Influenza like illness [Unknown]
  - Pyrexia [Unknown]

NARRATIVE: CASE EVENT DATE: 20240201
